FAERS Safety Report 4941101-9 (Version None)
Quarter: 2006Q1

REPORT INFORMATION
  Report Type: 
  Country: None (occurrence: None)
  Receive Date: 20060310
  Receipt Date: 20060310
  Transmission Date: 20060701
  Serious: Yes (Other)
  Sender: FDA-Public Use
  Company Number: None

PATIENT
  Age: 19 Year
  Sex: Female
  Weight: 68.0396 kg

DRUGS (2)
  1. AMBIEN [Suspect]
     Indication: DEPRESSION
     Dosage: 5 MG   1 PILL AT BEDTIME  PO
     Route: 048
     Dates: start: 20041229, end: 20041230
  2. AMBIEN [Suspect]
     Indication: INSOMNIA
     Dosage: 5 MG   1 PILL AT BEDTIME  PO
     Route: 048
     Dates: start: 20041229, end: 20041230

REACTIONS (10)
  - ABNORMAL BEHAVIOUR [None]
  - ABNORMAL DREAMS [None]
  - CONVERSION DISORDER [None]
  - DIPLOPIA [None]
  - DISORIENTATION [None]
  - DYSARTHRIA [None]
  - FALL [None]
  - HALLUCINATION, AUDITORY [None]
  - HALLUCINATION, VISUAL [None]
  - VERTIGO [None]
